FAERS Safety Report 11803295 (Version 1)
Quarter: 2015Q4

REPORT INFORMATION
  Report Type: Spontaneous
  Country: US (occurrence: US)
  Receive Date: 20151204
  Receipt Date: 20151204
  Transmission Date: 20160305
  Serious: No
  Sender: FDA-Public Use
  Company Number: US-GUERBET LLC-1045069

PATIENT
  Age: 38 Year
  Sex: Female
  Weight: 56.7 kg

DRUGS (1)
  1. OXILAN [Suspect]
     Active Substance: IOXILAN
     Indication: COMPUTERISED TOMOGRAM THORAX
     Dates: start: 20070919, end: 20070919

REACTIONS (1)
  - Urticaria [Recovered/Resolved]

NARRATIVE: CASE EVENT DATE: 20070919
